FAERS Safety Report 6516335-2 (Version None)
Quarter: 2009Q4

REPORT INFORMATION
  Report Type: 
  Country: None (occurrence: None)
  Receive Date: 20091223
  Receipt Date: 20091215
  Transmission Date: 20100525
  Serious: Yes (Death, Hospitalization)
  Sender: FDA-Public Use
  Company Number: A0795584A

PATIENT
  Sex: Female

DRUGS (8)
  1. TYKERB [Suspect]
     Dosage: 1250MG PER DAY
     Route: 048
     Dates: start: 20090703, end: 20091101
  2. XELODA [Suspect]
     Indication: DRUG USE FOR UNKNOWN INDICATION
     Route: 065
     Dates: end: 20091101
  3. HYDROMORPHONE HCL [Concomitant]
     Indication: DRUG USE FOR UNKNOWN INDICATION
     Route: 065
  4. LYRICA [Concomitant]
     Indication: DRUG USE FOR UNKNOWN INDICATION
     Route: 065
  5. SENOKOT [Concomitant]
     Indication: DRUG USE FOR UNKNOWN INDICATION
     Route: 065
  6. ZOFRAN [Concomitant]
     Indication: NAUSEA
     Route: 065
  7. ATIVAN [Concomitant]
     Route: 065
  8. LACTULOSE [Concomitant]
     Indication: CONSTIPATION
     Route: 065

REACTIONS (12)
  - CONFUSIONAL STATE [None]
  - CONSTIPATION [None]
  - CYANOSIS [None]
  - DEATH [None]
  - DECREASED APPETITE [None]
  - DIARRHOEA [None]
  - FATIGUE [None]
  - LUNG INFECTION [None]
  - MALAISE [None]
  - NAUSEA [None]
  - PNEUMONITIS [None]
  - VOMITING [None]
